FAERS Safety Report 10015490 (Version 4)
Quarter: 2014Q2

REPORT INFORMATION
  Report Type: Spontaneous
  Country: US (occurrence: US)
  Receive Date: 20140317
  Receipt Date: 20140616
  Transmission Date: 20141212
  Serious: Yes (Hospitalization, Other)
  Sender: FDA-Public Use
  Company Number: US-GILEAD-2014-0096750

PATIENT
  Sex: Female

DRUGS (4)
  1. LETAIRIS [Suspect]
     Indication: PRODUCT USED FOR UNKNOWN INDICATION
     Dosage: 10 MG, QD
     Route: 048
     Dates: start: 20120501
  2. XARELTO [Suspect]
     Indication: PRODUCT USED FOR UNKNOWN INDICATION
     Route: 065
  3. HEPARIN [Concomitant]
  4. VELETRI [Concomitant]

REACTIONS (6)
  - Neck injury [Unknown]
  - Central venous catheter removal [Unknown]
  - Sepsis [Unknown]
  - Staphylococcal infection [Unknown]
  - Escherichia infection [Unknown]
  - Thrombosis [Unknown]
